FAERS Safety Report 6038745-2 (Version None)
Quarter: 2009Q1

REPORT INFORMATION
  Report Type: 
  Country: None (occurrence: None)
  Receive Date: 20090114
  Receipt Date: 20090114
  Transmission Date: 20090719
  Serious: Yes (Hospitalization)
  Sender: FDA-Public Use
  Company Number: None

PATIENT
  Age: 59 Year
  Sex: Male
  Weight: 67 kg

DRUGS (2)
  1. SIMVASTATIN [Suspect]
     Indication: HYPERLIPIDAEMIA
     Dosage: 20 MG AT BEDTIME PO
     Route: 048
     Dates: start: 20040205, end: 20081230
  2. SIMVASTATIN [Suspect]
     Indication: RHABDOMYOLYSIS
     Dosage: 20 MG AT BEDTIME PO
     Route: 048
     Dates: start: 20040205, end: 20081230

REACTIONS (1)
  - RHABDOMYOLYSIS [None]
